FAERS Safety Report 7866573-1 (Version None)
Quarter: 2011Q4

REPORT INFORMATION
  Report Type: 
  Country: None (occurrence: None)
  Receive Date: 20111028
  Receipt Date: 20110708
  Transmission Date: 20120403
  Serious: No
  Sender: FDA-Public Use
  Company Number: US-GLAXOSMITHKLINE-A0936056A

PATIENT
  Age: 82 Year
  Sex: Male

DRUGS (2)
  1. ADVAIR DISKUS 100/50 [Suspect]
     Indication: PNEUMONIA PRIMARY ATYPICAL
     Dosage: 1PUFF TWICE PER DAY
     Route: 055
     Dates: start: 20110708
  2. BLOOD PRESSURE MEDICATION [Concomitant]

REACTIONS (1)
  - OVERDOSE [None]
